FAERS Safety Report 25317130 (Version 1)
Quarter: 2025Q2

REPORT INFORMATION
  Report Type: Spontaneous
  Country: IN (occurrence: IN)
  Receive Date: 20250515
  Receipt Date: 20250515
  Transmission Date: 20250716
  Serious: Yes (Life-Threatening, Hospitalization, Disabling)
  Sender: HETERO
  Company Number: IN-HETERO-HET2025IN02185

PATIENT
  Age: 61 Year
  Sex: Male

DRUGS (1)
  1. ROSUVASTATIN [Suspect]
     Active Substance: ROSUVASTATIN
     Indication: Vascular calcification
     Route: 065

REACTIONS (3)
  - Myositis [Recovering/Resolving]
  - Muscle necrosis [Recovering/Resolving]
  - Off label use [Unknown]
